FAERS Safety Report 11272836 (Version 2)
Quarter: 2015Q3

REPORT INFORMATION
  Report Type: Report from Study
  Country: US (occurrence: US)
  Receive Date: 20150715
  Receipt Date: 20150925
  Transmission Date: 20151125
  Serious: Yes (Hospitalization)
  Sender: FDA-Public Use
  Company Number: US-ABBVIE-15K-163-1423089-00

PATIENT
  Sex: Female
  Weight: 48.58 kg

DRUGS (14)
  1. AZULFIDINE [Suspect]
     Active Substance: SULFASALAZINE
     Indication: PRODUCT USED FOR UNKNOWN INDICATION
     Route: 065
  2. SPIRIVA [Concomitant]
     Active Substance: TIOTROPIUM BROMIDE MONOHYDRATE
     Indication: EMPHYSEMA
  3. PREDNISONE. [Concomitant]
     Active Substance: PREDNISONE
     Dosage: BED TIME
  4. HUMIRA [Suspect]
     Active Substance: ADALIMUMAB
     Route: 058
     Dates: start: 201502, end: 201502
  5. HUMIRA [Suspect]
     Active Substance: ADALIMUMAB
     Route: 058
     Dates: start: 201503, end: 201506
  6. ADVAIR HFA [Concomitant]
     Active Substance: FLUTICASONE PROPIONATE\SALMETEROL XINAFOATE
     Indication: EMPHYSEMA
  7. PANTOPRAZOLE [Concomitant]
     Active Substance: PANTOPRAZOLE SODIUM
     Indication: PRODUCT USED FOR UNKNOWN INDICATION
     Route: 048
  8. IMODIUM [Concomitant]
     Active Substance: LOPERAMIDE HYDROCHLORIDE
     Indication: PRODUCT USED FOR UNKNOWN INDICATION
  9. HUMIRA [Suspect]
     Active Substance: ADALIMUMAB
     Indication: COLITIS ULCERATIVE
     Route: 058
     Dates: start: 20150214, end: 20150214
  10. PREDNISONE. [Concomitant]
     Active Substance: PREDNISONE
     Indication: PRODUCT USED FOR UNKNOWN INDICATION
     Dosage: BED TIME
  11. PREDNISONE. [Concomitant]
     Active Substance: PREDNISONE
     Dosage: BED TIME
  12. ALBUTEROL. [Concomitant]
     Active Substance: ALBUTEROL
     Indication: PRODUCT USED FOR UNKNOWN INDICATION
     Dosage: EVERY 6 HOURS
  13. COMBIVENT [Concomitant]
     Active Substance: ALBUTEROL SULFATE\IPRATROPIUM BROMIDE
     Indication: EMPHYSEMA
     Dosage: 20/100
  14. DELZICOL [Concomitant]
     Active Substance: MESALAMINE
     Indication: COLITIS
     Route: 048

REACTIONS (18)
  - Blood potassium decreased [Recovering/Resolving]
  - Chest pain [Unknown]
  - Oral candidiasis [Recovered/Resolved]
  - Eyelid oedema [Unknown]
  - Cardiac failure congestive [Unknown]
  - Tachycardia [Recovering/Resolving]
  - Haematochezia [Unknown]
  - Emphysema [Unknown]
  - Dyspnoea exertional [Unknown]
  - Colitis ulcerative [Recovering/Resolving]
  - Diverticulum intestinal [Unknown]
  - Dehydration [Recovering/Resolving]
  - Clostridium difficile infection [Recovered/Resolved]
  - Dyspnoea [Recovering/Resolving]
  - Weight increased [Unknown]
  - Hiatus hernia [Unknown]
  - Hepatic cyst [Unknown]
  - Drug hypersensitivity [Unknown]

NARRATIVE: CASE EVENT DATE: 2015
